FAERS Safety Report 4727477-6 (Version None)
Quarter: 2005Q3

REPORT INFORMATION
  Report Type: 
  Country: None (occurrence: None)
  Receive Date: 20050728
  Receipt Date: 20050720
  Transmission Date: 20060218
  Serious: Yes (Hospitalization)
  Sender: FDA-Public Use
  Company Number: FR-ROCHE-411493

PATIENT
  Age: 19 Year
  Sex: Male

DRUGS (5)
  1. CLONAZEPAM [Suspect]
     Indication: DRUG USE FOR UNKNOWN INDICATION
     Route: 048
     Dates: start: 20050415, end: 20050506
  2. TEGRETOL [Suspect]
     Indication: DRUG USE FOR UNKNOWN INDICATION
     Route: 048
     Dates: start: 20050408, end: 20050506
  3. THERALENE [Concomitant]
     Route: 048
     Dates: start: 20050330, end: 20050510
  4. TERCIAN [Concomitant]
     Route: 048
     Dates: start: 20050504, end: 20050506
  5. HALDOL [Concomitant]
     Route: 048
     Dates: start: 20050415, end: 20050510

REACTIONS (2)
  - LEUKOPENIA [None]
  - NEUTROPENIA [None]
